FAERS Safety Report 9753686 (Version 2)
Quarter: 2015Q3

REPORT INFORMATION
  Report Type: Spontaneous
  Country: US (occurrence: US)
  Receive Date: 20131213
  Receipt Date: 20150805
  Transmission Date: 20151125
  Serious: No
  Sender: FDA-Public Use
  Company Number: US-GILEAD-2009-0026062

PATIENT
  Age: 84 Year
  Sex: Female

DRUGS (13)
  1. OMEPRAZOLE. [Concomitant]
     Active Substance: OMEPRAZOLE
  2. ADVAIR HFA [Concomitant]
     Active Substance: FLUTICASONE PROPIONATE\SALMETEROL XINAFOATE
  3. ALBUTEROL. [Concomitant]
     Active Substance: ALBUTEROL
  4. ZOCOR [Concomitant]
     Active Substance: SIMVASTATIN
  5. DIOVAN [Concomitant]
     Active Substance: VALSARTAN
  6. IPRATROPIUM [Concomitant]
     Active Substance: IPRATROPIUM
  7. LETAIRIS [Suspect]
     Active Substance: AMBRISENTAN
     Indication: SYSTEMIC SCLEROSIS
     Route: 048
     Dates: start: 20090803, end: 20090910
  8. DORZOLAMIDE [Concomitant]
     Active Substance: DORZOLAMIDE
  9. NORVASC [Concomitant]
     Active Substance: AMLODIPINE BESYLATE
  10. SINGULAIR [Concomitant]
     Active Substance: MONTELUKAST SODIUM
  11. XANAX [Concomitant]
     Active Substance: ALPRAZOLAM
  12. PROAIR HFA [Concomitant]
     Active Substance: ALBUTEROL SULFATE
  13. ACTONEL [Concomitant]
     Active Substance: RISEDRONATE SODIUM

REACTIONS (1)
  - Oedema peripheral [Recovered/Resolved]

NARRATIVE: CASE EVENT DATE: 20091008
